FAERS Safety Report 13801878 (Version 7)
Quarter: 2018Q3

REPORT INFORMATION
  Report Type: Report from Study
  Country: ZA (occurrence: ZA)
  Receive Date: 20170727
  Receipt Date: 20180904
  Transmission Date: 20181010
  Serious: Yes (Other)
  Sender: FDA-Public Use
  Company Number: PHHY2017ZA108027

PATIENT
  Sex: Male
  Weight: 67.8 kg

DRUGS (4)
  1. FOLIC ACID. [Concomitant]
     Active Substance: FOLIC ACID
     Indication: PRODUCT USED FOR UNKNOWN INDICATION
     Dosage: 1X DAILY
     Route: 065
  2. DESFERAL [Suspect]
     Active Substance: DEFEROXAMINE MESYLATE
     Indication: THALASSAEMIA
     Dosage: UNK
     Route: 065
  3. EXJADE [Suspect]
     Active Substance: DEFERASIROX
     Indication: THALASSAEMIA
     Dosage: 2500 MG, QD
     Route: 065
     Dates: start: 2007
  4. PENICILLIN V?K [Concomitant]
     Active Substance: PENICILLIN V POTASSIUM
     Indication: PRODUCT USED FOR UNKNOWN INDICATION
     Dosage: UNK UNK, QD (1 X DAILY)
     Route: 065
     Dates: start: 2004

REACTIONS (5)
  - Drug prescribing error [Unknown]
  - Gastric disorder [Unknown]
  - Diarrhoea [Recovered/Resolved]
  - Diabetes mellitus [Not Recovered/Not Resolved]
  - Serum ferritin increased [Unknown]
